FAERS Safety Report 25728537 (Version 1)
Quarter: 2025Q3

REPORT INFORMATION
  Report Type: Spontaneous
  Country: CN (occurrence: CN)
  Receive Date: 20250826
  Receipt Date: 20250826
  Transmission Date: 20251021
  Serious: Yes (Life-Threatening, Hospitalization, Other)
  Sender: PFIZER
  Company Number: CN-PFIZER INC-PV202500102032

PATIENT
  Age: 70 Year
  Sex: Male

DRUGS (3)
  1. MEROPENEM [Suspect]
     Active Substance: MEROPENEM
     Indication: Evidence based treatment
     Dosage: 1 G, 2X/DAY (Q12H)
  2. MEROPENEM [Suspect]
     Active Substance: MEROPENEM
     Indication: Klebsiella infection
     Dosage: 1 G, 3X/DAY (EVERY 8 HOUR)
  3. INSULIN ASPART [Concomitant]
     Active Substance: INSULIN ASPART
     Indication: Type 2 diabetes mellitus

REACTIONS (2)
  - Drug resistance [Recovered/Resolved]
  - Drug ineffective [Recovered/Resolved]
